FAERS Safety Report 4953416-9 (Version None)
Quarter: 2006Q1

REPORT INFORMATION
  Report Type: 
  Country: None (occurrence: None)
  Receive Date: 20060324
  Receipt Date: 20060320
  Transmission Date: 20060701
  Serious: Yes (Hospitalization)
  Sender: FDA-Public Use
  Company Number: PHEH2006US03684

PATIENT
  Sex: Male

DRUGS (6)
  1. CLOZARIL [Suspect]
     Indication: SCHIZOPHRENIA
     Dosage: 600 MG, QD
     Route: 048
     Dates: end: 20060201
  2. CLOZARIL [Suspect]
     Dosage: 550 MG, QD
     Route: 048
     Dates: start: 20060201, end: 20060307
  3. CLOZARIL [Suspect]
     Dosage: 25 MG, QD
     Route: 048
  4. CLOZARIL [Suspect]
     Dosage: 325 MG, QD
     Route: 048
  5. RISPERDAL [Concomitant]
     Indication: SCHIZOPHRENIA
  6. TRILEPTAL [Concomitant]
     Indication: AFFECTIVE DISORDER

REACTIONS (4)
  - ALCOHOL WITHDRAWAL SYNDROME [None]
  - ALCOHOLISM [None]
  - PSYCHOTIC DISORDER [None]
  - SUICIDAL IDEATION [None]
